FAERS Safety Report 9539486 (Version 2)
Quarter: 2013Q4

REPORT INFORMATION
  Report Type: Spontaneous
  Country: DE (occurrence: DE)
  Receive Date: 20130920
  Receipt Date: 20131210
  Transmission Date: 20140711
  Serious: Yes (Other)
  Sender: FDA-Public Use
  Company Number: DE-JNJFOC-20130911563

PATIENT
  Age: 61 Year
  Sex: Male

DRUGS (4)
  1. XARELTO [Suspect]
     Indication: THROMBOSIS PROPHYLAXIS
     Route: 048
     Dates: start: 20130720, end: 20130913
  2. XARELTO [Suspect]
     Indication: DEEP VEIN THROMBOSIS
     Route: 048
     Dates: start: 20130720, end: 20130913
  3. INNOHEP [Concomitant]
     Dosage: 0.9 UNK, UNK
     Route: 065
  4. CETIRIZIN [Concomitant]
     Route: 065

REACTIONS (5)
  - Eyelid oedema [Recovering/Resolving]
  - Erythema of eyelid [Recovering/Resolving]
  - Rash [Recovering/Resolving]
  - Constipation [Unknown]
  - Pruritus [Unknown]
